FAERS Safety Report 8120409-2 (Version None)
Quarter: 2012Q1

REPORT INFORMATION
  Report Type: 
  Country: None (occurrence: None)
  Receive Date: 20120207
  Receipt Date: 20120202
  Transmission Date: 20120608
  Serious: Yes (Other)
  Sender: FDA-Public Use
  Company Number: CHPA2012BR002480

PATIENT
  Age: 47 Year
  Sex: Female

DRUGS (4)
  1. AMLODIPINE BESYLATE [Suspect]
     Dosage: 5 MG, UNK
  2. ASPIRIN [Suspect]
     Dosage: UNK, UNK
  3. CANDESARTAN CILEXETIL [Suspect]
     Dosage: 16 MG, UNK
  4. CIBALENAA [Suspect]
     Indication: HEADACHE
     Dosage: 1 DF, PRN, MORE THAN 10 YEARS
     Route: 048

REACTIONS (5)
  - HYPERTENSION [None]
  - CONDITION AGGRAVATED [None]
  - CEREBROVASCULAR ACCIDENT [None]
  - DRUG ADMINISTRATION ERROR [None]
  - MIGRAINE [None]
